FAERS Safety Report 24592904 (Version 1)
Quarter: 2024Q4

REPORT INFORMATION
  Report Type: Spontaneous
  Country: US (occurrence: None)
  Receive Date: 20241107
  Receipt Date: 20241107
  Transmission Date: 20250114
  Serious: Yes (Death)
  Sender: Public
  Company Number: None

PATIENT
  Age: 43 Year
  Sex: Male
  Weight: 87.4 kg

DRUGS (1)
  1. MIRCERA [Suspect]
     Active Substance: METHOXY POLYETHYLENE GLYCOL-EPOETIN BETA
     Indication: Anaemia
     Dates: start: 20241003, end: 20241003

REACTIONS (4)
  - Presyncope [None]
  - Unresponsive to stimuli [None]
  - Blood pressure immeasurable [None]
  - Pulse absent [None]

NARRATIVE: CASE EVENT DATE: 20241003
